FAERS Safety Report 13529064 (Version 3)
Quarter: 2017Q3

REPORT INFORMATION
  Report Type: Spontaneous
  Country: US (occurrence: US)
  Receive Date: 20170509
  Receipt Date: 20170801
  Transmission Date: 20171127
  Serious: Yes (Other)
  Sender: FDA-Public Use
  Company Number: US-009507513-1705USA004183

PATIENT
  Age: 57 Year
  Sex: Male

DRUGS (1)
  1. DEXAMETHASONE. [Suspect]
     Active Substance: DEXAMETHASONE
     Indication: METASTATIC NEOPLASM
     Dosage: HIGH DOSES OF DEXAMETHASONE
     Route: 048

REACTIONS (2)
  - Meningitis bacterial [Unknown]
  - Strongyloidiasis [Unknown]
